FAERS Safety Report 5298812-8 (Version None)
Quarter: 2007Q2

REPORT INFORMATION
  Report Type: 
  Country: None (occurrence: None)
  Receive Date: 20070411
  Receipt Date: 20070411
  Transmission Date: 20071010
  Serious: Yes (Hospitalization)
  Sender: FDA-Public Use
  Company Number: None

PATIENT
  Age: 69 Year
  Sex: Male
  Weight: 52.5 kg

DRUGS (1)
  1. PHENYTOIN [Suspect]
     Indication: CONVULSION
     Dosage: 300MG, 300MG QD, ORAL
     Route: 048
     Dates: start: 19930924, end: 20070315

REACTIONS (1)
  - THERAPEUTIC AGENT TOXICITY [None]
